FAERS Safety Report 20730341 (Version 1)
Quarter: 2022Q2

REPORT INFORMATION
  Report Type: Report from Study
  Country: US (occurrence: US)
  Receive Date: 20220420
  Receipt Date: 20220420
  Transmission Date: 20220721
  Serious: Yes (Death)
  Sender: FDA-Public Use
  Company Number: US-ABBVIE-22K-163-4364133-00

PATIENT
  Sex: Male

DRUGS (1)
  1. CREON [Suspect]
     Active Substance: PANCRELIPASE AMYLASE\PANCRELIPASE LIPASE\PANCRELIPASE PROTEASE
     Indication: Product used for unknown indication
     Dosage: 2 PILLS WITH EACH MEAL AND 1 WITH SNACK
     Route: 048

REACTIONS (3)
  - Adverse drug reaction [Fatal]
  - Cerebral haemorrhage [Fatal]
  - Neoplasm malignant [Fatal]
